FAERS Safety Report 17594383 (Version 9)
Quarter: 2023Q2

REPORT INFORMATION
  Report Type: Spontaneous
  Country: GB (occurrence: GB)
  Receive Date: 20200327
  Receipt Date: 20230511
  Transmission Date: 20230722
  Serious: Yes (Hospitalization, Other)
  Sender: FDA-Public Use
  Company Number: GB-BIOGEN-2020BI00853759

PATIENT
  Age: 45 Year
  Sex: Female

DRUGS (5)
  1. AVONEX PEN [Suspect]
     Active Substance: INTERFERON BETA-1A
     Indication: Multiple sclerosis
     Dosage: 30MCG (6MIU)
     Route: 050
     Dates: start: 2007
  2. AVONEX PEN [Suspect]
     Active Substance: INTERFERON BETA-1A
     Route: 050
     Dates: start: 200711
  3. AVONEX PEN [Suspect]
     Active Substance: INTERFERON BETA-1A
     Dosage: (6 MIU)
     Route: 050
     Dates: start: 2019
  4. AVONEX PEN [Suspect]
     Active Substance: INTERFERON BETA-1A
     Dosage: 30MCG (6MIU)
     Route: 050
     Dates: start: 1999
  5. OMEPRAZOLE [Concomitant]
     Active Substance: OMEPRAZOLE
     Indication: Product used for unknown indication
     Route: 050

REACTIONS (11)
  - Thrombosis [Unknown]
  - Back disorder [Unknown]
  - Musculoskeletal discomfort [Unknown]
  - Fall [Recovered/Resolved]
  - Haemorrhage [Unknown]
  - Contusion [Unknown]
  - Pneumonia [Unknown]
  - Seizure [Unknown]
  - Multiple sclerosis [Unknown]
  - Influenza [Unknown]
  - Hemiparesis [Unknown]

NARRATIVE: CASE EVENT DATE: 20200301
